FAERS Safety Report 4681014-3 (Version None)
Quarter: 2005Q2

REPORT INFORMATION
  Report Type: 
  Country: None (occurrence: None)
  Receive Date: 20050601
  Receipt Date: 20050601
  Transmission Date: 20051028
  Serious: Yes (Other)
  Sender: FDA-Public Use
  Company Number: None

PATIENT
  Sex: Male
  Weight: 95.2554 kg

DRUGS (2)
  1. PREDNISONE TAB [Suspect]
     Indication: URTICARIA
     Dosage: 2 DAY ORAL
     Route: 048
     Dates: start: 20030815, end: 20030829
  2. LASIX [Concomitant]

REACTIONS (3)
  - HEADACHE [None]
  - MASS [None]
  - WEIGHT INCREASED [None]
